FAERS Safety Report 25037172 (Version 1)
Quarter: 2025Q1

REPORT INFORMATION
  Report Type: Spontaneous
  Country: US (occurrence: US)
  Receive Date: 20250304
  Receipt Date: 20250304
  Transmission Date: 20250408
  Serious: Yes (Hospitalization)
  Sender: GE HEALTHCARE
  Company Number: US-GE HEALTHCARE-2025CSU002413

PATIENT
  Age: 58 Year
  Sex: Male
  Weight: 98.866 kg

DRUGS (1)
  1. OMNIPAQUE [Suspect]
     Active Substance: IOHEXOL
     Indication: Epidural injection
     Route: 008
     Dates: start: 20250214

REACTIONS (2)
  - Staphylococcal sepsis [Not Recovered/Not Resolved]
  - Urinary retention [Not Recovered/Not Resolved]

NARRATIVE: CASE EVENT DATE: 20250214
